FAERS Safety Report 10085031 (Version 2)
Quarter: 2014Q2

REPORT INFORMATION
  Report Type: Spontaneous
  Country: FR (occurrence: FR)
  Receive Date: 20140417
  Receipt Date: 20140529
  Transmission Date: 20141212
  Serious: Yes (Death)
  Sender: FDA-Public Use
  Company Number: FR-PFIZER INC-2014103379

PATIENT
  Age: 78 Year
  Sex: Female

DRUGS (1)
  1. DALACINE [Suspect]
     Indication: ANTIBIOTIC PROPHYLAXIS
     Dosage: ONE INJECTION
     Dates: start: 20130422, end: 20130422

REACTIONS (1)
  - Septic shock [Fatal]
